FAERS Safety Report 18935211 (Version 1)
Quarter: 2021Q1

REPORT INFORMATION
  Report Type: Spontaneous
  Country: US (occurrence: US)
  Receive Date: 20210224
  Receipt Date: 20210224
  Transmission Date: 20210420
  Serious: No
  Sender: FDA-Public Use
  Company Number: US-TERSERA THERAPEUTICS LLC-2018-US-008388

PATIENT

DRUGS (42)
  1. MORPHINE [Suspect]
     Active Substance: MORPHINE
     Dosage: 3.753 MG, QD
     Route: 037
  2. BUPIVACAINE. [Suspect]
     Active Substance: BUPIVACAINE
     Dosage: 4.791 MG, QD
     Route: 037
  3. LYRICA [Concomitant]
     Active Substance: PREGABALIN
     Indication: PRODUCT USED FOR UNKNOWN INDICATION
     Dosage: 1 CAPSULE 2 TIMES DAILY
     Route: 048
     Dates: start: 20190904
  4. RISPERDAL [Concomitant]
     Active Substance: RISPERIDONE
     Indication: PRODUCT USED FOR UNKNOWN INDICATION
     Dosage: 1?2 TABLET AT BED TIME
     Route: 048
     Dates: start: 20190911
  5. PRIALT [Suspect]
     Active Substance: ZICONOTIDE ACETATE
     Dosage: 1.346 MCG, QD
     Route: 037
  6. MORPHINE [Suspect]
     Active Substance: MORPHINE
     Indication: PRODUCT USED FOR UNKNOWN INDICATION
     Dosage: 3.303 MG, QD
     Route: 037
  7. BUPIVACAINE. [Suspect]
     Active Substance: BUPIVACAINE
     Dosage: 0.300 MG
     Route: 037
  8. BUPIVACAINE. [Suspect]
     Active Substance: BUPIVACAINE
     Dosage: 3.004 MG, QD
     Route: 037
  9. BACLOFEN. [Suspect]
     Active Substance: BACLOFEN
     Dosage: 51.616 MCG, QD
     Route: 037
  10. PRIALT [Suspect]
     Active Substance: ZICONOTIDE ACETATE
     Dosage: 0.246 MCG
     Route: 037
  11. PRIALT [Suspect]
     Active Substance: ZICONOTIDE ACETATE
     Dosage: 11.828 MCG, QD (CONCENTRATION:25 MCG)
     Route: 037
  12. MORPHINE [Suspect]
     Active Substance: MORPHINE
     Dosage: 0.5 MG, QD
     Route: 037
  13. BUPIVACAINE. [Suspect]
     Active Substance: BUPIVACAINE
     Dosage: 8.081 MG, QD
     Route: 037
  14. FENTANYL. [Suspect]
     Active Substance: FENTANYL
     Dosage: 19.356 MCG, QD
     Route: 065
  15. PRIALT [Suspect]
     Active Substance: ZICONOTIDE ACETATE
     Dosage: 0.050 MCG
     Route: 037
  16. PRIALT [Suspect]
     Active Substance: ZICONOTIDE ACETATE
     Dosage: 1.251 MCG, QD
     Route: 037
     Dates: start: 20180425, end: 20180523
  17. MORPHINE [Suspect]
     Active Substance: MORPHINE
     Dosage: 0.150 MG
     Route: 037
  18. MORPHINE [Suspect]
     Active Substance: MORPHINE
     Dosage: 0.738 MG
     Route: 037
  19. BUPIVACAINE. [Suspect]
     Active Substance: BUPIVACAINE
     Dosage: 11.172 MG, QD
     Route: 037
  20. FENTANYL. [Suspect]
     Active Substance: FENTANYL
     Dosage: 27.931 MCG, QD
     Route: 065
  21. BACLOFEN. [Suspect]
     Active Substance: BACLOFEN
     Dosage: 53.964 MCG, QD
     Route: 037
  22. LEXAPRO [Concomitant]
     Active Substance: ESCITALOPRAM OXALATE
     Indication: PRODUCT USED FOR UNKNOWN INDICATION
     Dosage: 1 TABLET EVERY DAY
     Route: 048
     Dates: start: 20190710
  23. PRIALT [Suspect]
     Active Substance: ZICONOTIDE ACETATE
     Indication: PAIN
     Dosage: 1.100 ?G, QD
     Route: 037
  24. PRIALT [Suspect]
     Active Substance: ZICONOTIDE ACETATE
     Dosage: 1.998 MCG, QD (CONCENTRATION:5 MCG)
     Route: 037
  25. PRIALT [Suspect]
     Active Substance: ZICONOTIDE ACETATE
     Dosage: 8.994 MCG, QD (CONCENTRATION:25 MCG)
     Route: 037
  26. MORPHINE [Suspect]
     Active Substance: MORPHINE
     Dosage: 0.993 MG, QD
     Route: 037
  27. MORPHINE [Suspect]
     Active Substance: MORPHINE
     Dosage: 0.050 MG
     Route: 037
  28. MORPHINE [Suspect]
     Active Substance: MORPHINE
     Dosage: 1.295 MG, QD
     Route: 037
  29. BUPIVACAINE. [Suspect]
     Active Substance: BUPIVACAINE
     Dosage: 5.996 MG, QD
     Route: 037
  30. BUPIVACAINE. [Suspect]
     Active Substance: BUPIVACAINE
     Dosage: 7.742 MG, QD
     Route: 037
  31. FENTANYL. [Suspect]
     Active Substance: FENTANYL
     Indication: PRODUCT USED FOR UNKNOWN INDICATION
     Dosage: 5.0 ?G/ML
     Route: 065
  32. BACLOFEN. [Suspect]
     Active Substance: BACLOFEN
     Dosage: 70.971 MCG, QD
     Route: 037
  33. MORPHINE [Suspect]
     Active Substance: MORPHINE
     Dosage: 4.041 MG, QD
     Route: 037
  34. BUPIVACAINE. [Suspect]
     Active Substance: BUPIVACAINE
     Indication: PRODUCT USED FOR UNKNOWN INDICATION
     Dosage: 6.605 MG, QD
     Route: 037
  35. BUPIVACAINE. [Suspect]
     Active Substance: BUPIVACAINE
     Dosage: 1.476 MG
     Route: 037
  36. BUPIVACAINE. [Suspect]
     Active Substance: BUPIVACAINE
     Dosage: 1.786 UNK
     Route: 037
  37. BACLOFEN. [Suspect]
     Active Substance: BACLOFEN
     Indication: PRODUCT USED FOR UNKNOWN INDICATION
     Dosage: 74.482 MCG, QD
     Route: 037
  38. PROPRANOLOL [Concomitant]
     Active Substance: PROPRANOLOL HYDROCHLORIDE
     Indication: PRODUCT USED FOR UNKNOWN INDICATION
     Dosage: 1 DOSAGE FORM, QHS (BEDTIME)
     Route: 048
  39. MEMANTINE. [Concomitant]
     Active Substance: MEMANTINE
     Indication: PRODUCT USED FOR UNKNOWN INDICATION
     Dosage: 1 TABLET 2 TIMES EVERY DAY
     Route: 048
     Dates: start: 20190821
  40. PRIALT [Suspect]
     Active Substance: ZICONOTIDE ACETATE
     Dosage: 2.502 MCG, QD (CONCENTRATION: 5 MCG)
     Route: 037
  41. MORPHINE [Suspect]
     Active Substance: MORPHINE
     Dosage: 0.295 MG
     Route: 037
  42. BUPIVACAINE. [Suspect]
     Active Substance: BUPIVACAINE
     Dosage: 7.507 MG, QD
     Route: 037

REACTIONS (31)
  - Overdose [Not Recovered/Not Resolved]
  - Decreased appetite [Recovered/Resolved]
  - Hyperhidrosis [Recovered/Resolved]
  - Pain [Not Recovered/Not Resolved]
  - Diarrhoea [Recovered/Resolved]
  - Dysuria [Recovered/Resolved]
  - Blood pressure increased [Not Recovered/Not Resolved]
  - Muscular weakness [Not Recovered/Not Resolved]
  - Dizziness [Recovered/Resolved]
  - Cervical radiculopathy [Unknown]
  - Decreased activity [Not Recovered/Not Resolved]
  - Vomiting [Recovered/Resolved]
  - Nausea [Not Recovered/Not Resolved]
  - Migraine [Unknown]
  - Withdrawal syndrome [Not Recovered/Not Resolved]
  - Headache [Not Recovered/Not Resolved]
  - Sedation [Recovered/Resolved]
  - Implant site pain [Recovered/Resolved]
  - Back pain [Not Recovered/Not Resolved]
  - Asthenia [Recovered/Resolved]
  - Anxiety [Not Recovered/Not Resolved]
  - Feeling abnormal [Recovered/Resolved]
  - Arthralgia [Not Recovered/Not Resolved]
  - Depression [Not Recovered/Not Resolved]
  - Gait disturbance [Recovered/Resolved]
  - Weight decreased [Recovered/Resolved]
  - Insomnia [Not Recovered/Not Resolved]
  - Mental disorder [Recovered/Resolved]
  - Mood altered [Recovered/Resolved]
  - Fatigue [Not Recovered/Not Resolved]
  - Off label use [Unknown]

NARRATIVE: CASE EVENT DATE: 2018
